FAERS Safety Report 19112954 (Version 1)
Quarter: 2021Q2

REPORT INFORMATION
  Report Type: Spontaneous
  Country: US (occurrence: US)
  Receive Date: 20210409
  Receipt Date: 20210409
  Transmission Date: 20210717
  Serious: No
  Sender: FDA-Public Use
  Company Number: US-ALLERGAN-2046363US

PATIENT
  Sex: Female
  Weight: 66.67 kg

DRUGS (3)
  1. MOTRIN [Concomitant]
     Active Substance: IBUPROFEN
     Indication: PAIN
     Dosage: 600 MG EVERY 6 HOURS AS NEEDED
     Route: 048
  2. ZOLOFT [Concomitant]
     Active Substance: SERTRALINE HYDROCHLORIDE
     Indication: ANXIETY
     Dosage: UNK UNK, QD
     Route: 048
  3. LILETTA [Suspect]
     Active Substance: LEVONORGESTREL
     Indication: CONTRACEPTION
     Dosage: 52 MG, SINGLE
     Route: 015
     Dates: start: 20200613, end: 20200909

REACTIONS (6)
  - Device use issue [Unknown]
  - Anxiety [Unknown]
  - Apathy [Unknown]
  - Device dislocation [Recovered/Resolved]
  - Ovarian cyst [Unknown]
  - Insomnia [Unknown]
